FAERS Safety Report 24683356 (Version 1)
Quarter: 2024Q4

REPORT INFORMATION
  Report Type: Spontaneous
  Country: JP (occurrence: JP)
  Receive Date: 20241201
  Receipt Date: 20241201
  Transmission Date: 20250115
  Serious: Yes (Death, Other)
  Sender: NOVARTIS
  Company Number: JP-002147023-NVSJ2024JP014009

PATIENT
  Age: 75 Year

DRUGS (1)
  1. LUTATHERA [Suspect]
     Active Substance: LUTETIUM OXODOTREOTIDE LU-177
     Indication: Neuroendocrine tumour
     Dosage: UNK
     Route: 042

REACTIONS (2)
  - Death [Fatal]
  - Anaemia [Unknown]
